FAERS Safety Report 4345039-X (Version None)
Quarter: 2004Q2

REPORT INFORMATION
  Report Type: 
  Country: None (occurrence: None)
  Receive Date: 20040420
  Receipt Date: 20040406
  Transmission Date: 20050107
  Serious: Yes (Hospitalization)
  Sender: FDA-Public Use
  Company Number: 2004AP02153

PATIENT
  Age: 74 Year
  Sex: Male

DRUGS (6)
  1. CASODEX [Suspect]
     Indication: PROSTATE CANCER
     Dosage: 80 MG DAILY PO
     Route: 048
     Dates: start: 20021101
  2. ZOLADEX [Suspect]
     Indication: PROSTATE CANCER
     Dosage: 11.3 MG DAILY PO
     Route: 048
     Dates: start: 20040106
  3. LEUPROLIDE ACETATE [Concomitant]
  4. LEUPROLIDE ACETATE [Concomitant]
  5. LOXONIN [Concomitant]
  6. VOLTAREN [Concomitant]

REACTIONS (2)
  - SPINAL COMPRESSION FRACTURE [None]
  - SPINAL DISORDER [None]
